FAERS Safety Report 21281311 (Version 1)
Quarter: 2022Q3

REPORT INFORMATION
  Report Type: Spontaneous
  Country: US (occurrence: US)
  Receive Date: 20220901
  Receipt Date: 20220901
  Transmission Date: 20221026
  Serious: Yes (Death, Other)
  Sender: FDA-Public Use
  Company Number: US-PFIZER INC-202201091398

PATIENT
  Age: 48 Year

DRUGS (3)
  1. THEOPHYLLINE [Suspect]
     Active Substance: THEOPHYLLINE
     Dosage: UNK
  2. DESIPRAMINE [Suspect]
     Active Substance: DESIPRAMINE
     Dosage: UNK
  3. CYCLOBENZAPRINE [Suspect]
     Active Substance: CYCLOBENZAPRINE
     Dosage: UNK

REACTIONS (1)
  - Completed suicide [Fatal]
